FAERS Safety Report 9878890 (Version 3)
Quarter: 2015Q2

REPORT INFORMATION
  Report Type: Report from Study
  Country: NZ (occurrence: NZ)
  Receive Date: 20140206
  Receipt Date: 20150401
  Transmission Date: 20150821
  Serious: Yes (Life-Threatening, Other)
  Sender: FDA-Public Use
  Company Number: PHHY2014NZ014787

PATIENT
  Age: 57 Year
  Sex: Male
  Weight: 69 kg

DRUGS (2)
  1. CLOZARIL [Suspect]
     Active Substance: CLOZAPINE
     Indication: SCHIZOPHRENIA
     Dosage: 400 MG, NOCTE (AT NIGHT)
     Route: 048
     Dates: start: 19950706
  2. CLOZARIL [Suspect]
     Active Substance: CLOZAPINE
     Indication: SCHIZOPHRENIA, PARANOID TYPE
     Dosage: UNK
     Route: 048

REACTIONS (29)
  - B-cell lymphoma [Unknown]
  - Periorbital cellulitis [Recovered/Resolved]
  - Thyroxine free decreased [Unknown]
  - Glycosylated haemoglobin increased [Unknown]
  - High density lipoprotein decreased [Unknown]
  - Neutrophil count decreased [Recovered/Resolved]
  - Diffuse large B-cell lymphoma [Unknown]
  - Hepatitis C [Unknown]
  - Mental disorder due to a general medical condition [Unknown]
  - Fatigue [Unknown]
  - White blood cell count decreased [Recovered/Resolved]
  - Total cholesterol/HDL ratio increased [Unknown]
  - Haemoglobin decreased [Recovered/Resolved]
  - White blood cell count decreased [Recovered/Resolved]
  - Constipation [Unknown]
  - Lymphoma [Recovered/Resolved]
  - Haematocrit decreased [Recovering/Resolving]
  - Neutrophil count decreased [Recovered/Resolved]
  - Lymphadenopathy [Unknown]
  - Neutropenia [Recovered/Resolved]
  - Red blood cell count decreased [Not Recovered/Not Resolved]
  - Skin infection [Unknown]
  - Lymphopenia [Not Recovered/Not Resolved]
  - Antipsychotic drug level below therapeutic [Unknown]
  - Platelet count decreased [Recovered/Resolved]
  - Immunosuppression [Recovering/Resolving]
  - Protein total decreased [Unknown]
  - White blood cell count decreased [Recovered/Resolved]
  - Lymphocyte count decreased [Not Recovered/Not Resolved]

NARRATIVE: CASE EVENT DATE: 201401
